FAERS Safety Report 9565488 (Version 4)
Quarter: 2014Q1

REPORT INFORMATION
  Report Type: Spontaneous
  Country: US (occurrence: US)
  Receive Date: 20130930
  Receipt Date: 20140121
  Transmission Date: 20141002
  Serious: Yes (Other)
  Sender: FDA-Public Use
  Company Number: US-PFIZER INC-2013278514

PATIENT
  Age: 62 Year
  Sex: Female
  Weight: 109 kg

DRUGS (2)
  1. LYRICA [Suspect]
     Indication: FIBROMYALGIA
     Dosage: 400 MG, DAILY
     Route: 048
  2. LYRICA [Suspect]
     Dosage: 100 UNK, TID

REACTIONS (3)
  - Cyst [Recovered/Resolved]
  - Neck pain [Unknown]
  - Dizziness [Not Recovered/Not Resolved]
